FAERS Safety Report 8185191-1 (Version None)
Quarter: 2012Q1

REPORT INFORMATION
  Report Type: 
  Country: None (occurrence: None)
  Receive Date: 20120305
  Receipt Date: 20120222
  Transmission Date: 20120608
  Serious: Yes (Hospitalization)
  Sender: FDA-Public Use
  Company Number: PHHY2010US36599

PATIENT
  Sex: Female
  Weight: 101 kg

DRUGS (1)
  1. MYFORTIC [Suspect]
     Indication: RENAL TRANSPLANT
     Dosage: 1440 UNK, UNK
     Route: 048
     Dates: start: 20100506

REACTIONS (8)
  - SKIN ULCER [None]
  - ANAEMIA [None]
  - ABDOMINAL WOUND DEHISCENCE [None]
  - ABDOMINAL WALL INFECTION [None]
  - STAPHYLOCOCCAL INFECTION [None]
  - VOMITING [None]
  - CONSTIPATION [None]
  - PURULENT DISCHARGE [None]
